FAERS Safety Report 8862473 (Version 1)
Quarter: 2012Q4

REPORT INFORMATION
  Report Type: 
  Country: US (occurrence: US)
  Receive Date: 20121026
  Receipt Date: 20121026
  Transmission Date: 20130627
  Serious: No
  Sender: FDA-Public Use
  Company Number: US-ALLERGAN-1201460US

PATIENT
  Age: 91 Year
  Sex: Female

DRUGS (1)
  1. ALPHAGAN [Suspect]
     Indication: GLAUCOMA
     Dosage: 2 Gtt, qd
     Route: 047
     Dates: start: 201109

REACTIONS (4)
  - Eye laser surgery [Unknown]
  - Eye irritation [Unknown]
  - Eye irritation [Unknown]
  - Ocular hyperaemia [Unknown]
